FAERS Safety Report 10133891 (Version 1)
Quarter: 2014Q2

REPORT INFORMATION
  Report Type: Spontaneous
  Country: AT (occurrence: AT)
  Receive Date: 20140428
  Receipt Date: 20140428
  Transmission Date: 20141212
  Serious: Yes (Other)
  Sender: FDA-Public Use
  Company Number: PHHY2014AT048645

PATIENT
  Age: 55 Year
  Sex: Female
  Weight: 67 kg

DRUGS (1)
  1. EBETAXEL EBEWE [Suspect]
     Indication: CYSTADENOCARCINOMA OVARY
     Dosage: 298.46 MG, ONCE/SINGLE
     Route: 042
     Dates: start: 20140404, end: 20140404

REACTIONS (4)
  - Somnolence [Recovered/Resolved]
  - Flushing [Recovered/Resolved]
  - Dizziness [Recovered/Resolved]
  - Malaise [Recovered/Resolved]
